FAERS Safety Report 25456999 (Version 3)
Quarter: 2025Q3

REPORT INFORMATION
  Report Type: Spontaneous
  Country: US (occurrence: US)
  Receive Date: 20250619
  Receipt Date: 20250804
  Transmission Date: 20251020
  Serious: No
  Sender: SANOFI AVENTIS
  Company Number: US-SA-2025SA173614

PATIENT
  Age: 59 Year
  Sex: Female

DRUGS (1)
  1. DUPIXENT [Suspect]
     Active Substance: DUPILUMAB
     Indication: Neurodermatitis
     Dosage: 300 MG, QOW
     Route: 058

REACTIONS (8)
  - Pelvic pain [Unknown]
  - Condition aggravated [Unknown]
  - Skin lesion [Unknown]
  - Sleep disorder due to general medical condition, insomnia type [Unknown]
  - Nausea [Unknown]
  - Pain of skin [Unknown]
  - Arthralgia [Unknown]
  - Neurodermatitis [Unknown]
